FAERS Safety Report 12133447 (Version 1)
Quarter: 2016Q1

REPORT INFORMATION
  Report Type: Report from Study
  Country: US (occurrence: US)
  Receive Date: 20160301
  Receipt Date: 20160301
  Transmission Date: 20160526
  Serious: No
  Sender: FDA-Public Use
  Company Number: US-ALEXION-A201601132

PATIENT
  Sex: Male

DRUGS (1)
  1. SOLIRIS [Suspect]
     Active Substance: ECULIZUMAB
     Indication: PAROXYSMAL NOCTURNAL HAEMOGLOBINURIA
     Dosage: 1200 MG, UNK
     Route: 042

REACTIONS (3)
  - Nasopharyngitis [Recovered/Resolved]
  - Haematocrit decreased [Recovered/Resolved]
  - Haemoglobin decreased [Recovered/Resolved]
